FAERS Safety Report 23465490 (Version 1)
Quarter: 2024Q1

REPORT INFORMATION
  Report Type: Spontaneous
  Country: US (occurrence: None)
  Receive Date: 20240131
  Receipt Date: 20240131
  Transmission Date: 20240409
  Serious: Yes (unspecified)
  Sender: FDA-Public Use
  Company Number: None

PATIENT
  Age: 52 Year
  Sex: Female
  Weight: 63.9 kg

DRUGS (1)
  1. VAGISIL ANTI ITCH MAXIMUM STRENGTH [Suspect]
     Active Substance: BENZOCAINE\RESORCINOL
     Indication: Fungal infection
     Dosage: FREQUENCY : 4 TIMES A DAY;?
     Route: 061
     Dates: start: 20231231, end: 20231231

REACTIONS (1)
  - Drug hypersensitivity [None]

NARRATIVE: CASE EVENT DATE: 20231231
